FAERS Safety Report 10182513 (Version 1)
Quarter: 2014Q2

REPORT INFORMATION
  Report Type: Spontaneous
  Country: US (occurrence: None)
  Receive Date: 20140519
  Receipt Date: 20140519
  Transmission Date: 20141212
  Serious: No
  Sender: FDA-Public Use
  Company Number: None

PATIENT
  Age: 42 Year
  Sex: Male
  Weight: 106.14 kg

DRUGS (12)
  1. BENADRYL [Suspect]
     Dosage: 50 MG (1 CAP), QHS PRN INSOMNIA, ORAL
     Route: 048
     Dates: start: 20140512, end: 20140513
  2. ROBAXIN 750MG [Concomitant]
  3. LIBRIUM 25MG [Concomitant]
  4. CATAPRES TTS1 PATCH [Concomitant]
  5. FOLIC ACID 1MG [Concomitant]
  6. MOTRIN 600MG [Concomitant]
  7. MULTIVITAMIN WITH MINERALS [Concomitant]
  8. THIAMIN 100MG [Concomitant]
  9. PRILOSEC 40MG [Concomitant]
  10. LISINOPRIL 10 MG [Concomitant]
  11. LOPID 600MG [Concomitant]
  12. HYDROCHLOROTHIAZIDE 25MG (1 X DAY) [Concomitant]

REACTIONS (2)
  - Agitation [None]
  - Paradoxical drug reaction [None]
